FAERS Safety Report 4555540-1 (Version None)
Quarter: 2005Q1

REPORT INFORMATION
  Report Type: 
  Country: None (occurrence: None)
  Receive Date: 20050119
  Receipt Date: 20041220
  Transmission Date: 20050727
  Serious: Yes (Death, Other)
  Sender: FDA-Public Use
  Company Number: CH-BRISTOL-MYERS SQUIBB COMPANY-12800934

PATIENT
  Sex: Male
  Weight: 85 kg

DRUGS (2)
  1. ABILIFY [Suspect]
     Indication: PSYCHOTIC DISORDER
     Route: 048
     Dates: start: 20040701
  2. TRUXAL [Concomitant]

REACTIONS (2)
  - DRUG DEPENDENCE [None]
  - OVERDOSE [None]
